FAERS Safety Report 7030499-6 (Version None)
Quarter: 2010Q4

REPORT INFORMATION
  Report Type: 
  Country: None (occurrence: None)
  Receive Date: 20101006
  Receipt Date: 20100924
  Transmission Date: 20110411
  Serious: Yes (Other)
  Sender: FDA-Public Use
  Company Number: DE-ROCHE-709169

PATIENT
  Sex: Male
  Weight: 79.5 kg

DRUGS (4)
  1. BEVACIZUMAB [Suspect]
     Indication: RENAL CELL CARCINOMA
     Route: 042
     Dates: start: 20100428
  2. ROFERON-A [Suspect]
     Indication: RENAL CELL CARCINOMA
     Route: 058
     Dates: start: 20100430, end: 20100511
  3. ROFERON-A [Suspect]
     Route: 058
     Dates: start: 20100513, end: 20100705
  4. ACETAMINOPHEN [Concomitant]
     Dosage: AS NEEDED
     Dates: start: 20100428

REACTIONS (2)
  - RETINAL EXUDATES [None]
  - RETINAL HAEMORRHAGE [None]
